FAERS Safety Report 21143300 (Version 1)
Quarter: 2022Q3

REPORT INFORMATION
  Report Type: Spontaneous
  Country: US (occurrence: US)
  Receive Date: 20220728
  Receipt Date: 20220728
  Transmission Date: 20221026
  Serious: Yes (Death)
  Sender: FDA-Public Use
  Company Number: US-CHEMOCENTRYX, INC.-2022USCCXI0251

PATIENT

DRUGS (1)
  1. TAVNEOS [Suspect]
     Active Substance: AVACOPAN
     Indication: Product used for unknown indication
     Dosage: 3 (10MG) CAPSULES, 2X/DAY
     Route: 048
     Dates: start: 20220624

REACTIONS (1)
  - Death [Fatal]

NARRATIVE: CASE EVENT DATE: 20220703
